FAERS Safety Report 7898372 (Version 3)
Quarter: 2012Q4

REPORT INFORMATION
  Report Type: 
  Country: US (occurrence: US)
  Receive Date: 20110414
  Receipt Date: 20121221
  Transmission Date: 20130627
  Serious: Yes (Hospitalization)
  Sender: FDA-Public Use
  Company Number: US-BIOGENIDEC-2011BI012950

PATIENT
  Sex: Female

DRUGS (2)
  1. AVONEX [Suspect]
     Indication: MULTIPLE SCLEROSIS
     Route: 030
     Dates: start: 20060209
  2. AMPYRA [Concomitant]
     Dates: start: 2011, end: 2011

REACTIONS (10)
  - Invasive ductal breast carcinoma [Not Recovered/Not Resolved]
  - Gastrointestinal surgery [Recovered/Resolved]
  - Procedural complication [Recovered/Resolved]
  - Fibromyalgia [Not Recovered/Not Resolved]
  - Type 2 diabetes mellitus [Unknown]
  - Osteoarthritis [Not Recovered/Not Resolved]
  - Dysphagia [Not Recovered/Not Resolved]
  - Breast cyst [Unknown]
  - Diverticulitis [Unknown]
  - Influenza like illness [Unknown]
